FAERS Safety Report 9443437 (Version 1)
Quarter: 2013Q3

REPORT INFORMATION
  Report Type: Spontaneous
  Country: BR (occurrence: BR)
  Receive Date: 20130806
  Receipt Date: 20130806
  Transmission Date: 20140515
  Serious: Yes (Hospitalization)
  Sender: FDA-Public Use
  Company Number: PHHY2013BR083628

PATIENT
  Age: 40 Year
  Sex: Male

DRUGS (3)
  1. LEPONEX [Suspect]
     Indication: SCHIZOPHRENIA
     Dosage: 4 DF, DAILY
     Route: 048
  2. LEPONEX [Suspect]
     Dosage: UNK UKN, UNK
  3. CLONAZEPAM [Suspect]
     Dosage: UNK UKN, UNK

REACTIONS (2)
  - General physical health deterioration [Recovered/Resolved]
  - Drug ineffective [Recovered/Resolved]
